FAERS Safety Report 15352222 (Version 1)
Quarter: 2018Q3

REPORT INFORMATION
  Report Type: Spontaneous
  Country: CN (occurrence: CN)
  Receive Date: 20180905
  Receipt Date: 20180905
  Transmission Date: 20181010
  Serious: Yes (Hospitalization, Other)
  Sender: FDA-Public Use
  Company Number: CN-PFIZER INC-2018352821

PATIENT
  Age: 13 Year
  Sex: Male
  Weight: 46 kg

DRUGS (3)
  1. A TUO MO LAN [Concomitant]
     Indication: THERAPEUTIC PROCEDURE
     Dosage: 600 MG, 1X/DAY
     Route: 041
     Dates: start: 20180711, end: 20180714
  2. RAMOSETRON [Concomitant]
     Active Substance: RAMOSETRON HYDROCHLORIDE
     Indication: VOMITING
     Dosage: 0.3 MG, 1X/DAY
     Route: 040
     Dates: start: 20180711, end: 20180711
  3. METHOTREXATE SODIUM. [Suspect]
     Active Substance: METHOTREXATE SODIUM
     Indication: LEUKAEMIA
     Dosage: 7 G, 1X/DAY
     Route: 041
     Dates: start: 20180711, end: 20180711

REACTIONS (2)
  - Drug level increased [Recovered/Resolved]
  - Renal failure [Recovering/Resolving]

NARRATIVE: CASE EVENT DATE: 20180713
